FAERS Safety Report 17293852 (Version 1)
Quarter: 2020Q1

REPORT INFORMATION
  Report Type: Spontaneous
  Country: US (occurrence: US)
  Receive Date: 20200102
  Receipt Date: 20200102
  Transmission Date: 20200409
  Serious: Yes (Life-Threatening, Hospitalization, Other)
  Sender: FDA-Public Use
  Company Number: None

PATIENT
  Age: 61 Year
  Sex: Male
  Weight: 120.66 kg

DRUGS (13)
  1. METHOTREXATE. [Concomitant]
     Active Substance: METHOTREXATE
  2. AMLODIPINE BESYLATE. [Concomitant]
     Active Substance: AMLODIPINE BESYLATE
  3. GLIMEPIRIDE. [Concomitant]
     Active Substance: GLIMEPIRIDE
  4. HYDROCODONE [Concomitant]
     Active Substance: HYDROCODONE
  5. FUROSEMIDE. [Concomitant]
     Active Substance: FUROSEMIDE
  6. LISINOPRIL. [Concomitant]
     Active Substance: LISINOPRIL
  7. EZETIMIBE. [Concomitant]
     Active Substance: EZETIMIBE
  8. METFORMIN HC [Concomitant]
     Active Substance: METFORMIN HYDROCHLORIDE
  9. FOLIC ACID. [Concomitant]
     Active Substance: FOLIC ACID
  10. ACTOS [Suspect]
     Active Substance: PIOGLITAZONE HYDROCHLORIDE
     Indication: DIABETES MELLITUS
     Dosage: ?          QUANTITY:45 UNK - UNKNOWN;?
     Route: 048
     Dates: start: 2013, end: 20191126
  11. CARVEDILOL. [Concomitant]
     Active Substance: CARVEDILOL
  12. ASPIRIN 81MG [Concomitant]
     Active Substance: ASPIRIN
  13. PRAMIPEXOLE. [Concomitant]
     Active Substance: PRAMIPEXOLE

REACTIONS (11)
  - Myalgia [None]
  - Back pain [None]
  - Bone disorder [None]
  - Aortic valve replacement [None]
  - Myocardial infarction [None]
  - Asthenia [None]
  - Spinal stenosis [None]
  - Sinus congestion [None]
  - Fluid retention [None]
  - Visual impairment [None]
  - Pain in extremity [None]

NARRATIVE: CASE EVENT DATE: 20150528
